FAERS Safety Report 6535931-X (Version None)
Quarter: 2010Q1

REPORT INFORMATION
  Report Type: 
  Country: None (occurrence: None)
  Receive Date: 20100113
  Receipt Date: 20100107
  Transmission Date: 20100710
  Serious: Yes (Death, Hospitalization)
  Sender: FDA-Public Use
  Company Number: A0838363A

PATIENT
  Sex: Female

DRUGS (2)
  1. FLOLAN [Suspect]
     Indication: PULMONARY HYPERTENSION
     Dosage: 20NGKM UNKNOWN
     Route: 065
     Dates: start: 20091109, end: 20100106
  2. FLOLAN [Suspect]
     Indication: PULMONARY HYPERTENSION
     Route: 065
     Dates: start: 20091109, end: 20100106

REACTIONS (1)
  - DEATH [None]
